FAERS Safety Report 5307205-6 (Version None)
Quarter: 2007Q2

REPORT INFORMATION
  Report Type: 
  Country: None (occurrence: None)
  Receive Date: 20070425
  Receipt Date: 20070301
  Transmission Date: 20071010
  Serious: No
  Sender: FDA-Public Use
  Company Number: US-AMGEN-US213371

PATIENT
  Sex: Female

DRUGS (3)
  1. VECTIBIX [Suspect]
     Indication: COLORECTAL CANCER
     Route: 065
     Dates: start: 20061024
  2. HYDROCHLOROTHIAZIDE [Concomitant]
     Route: 065
  3. XELODA [Concomitant]
     Route: 065
     Dates: end: 20070201

REACTIONS (4)
  - ABDOMINAL PAIN UPPER [None]
  - COUGH [None]
  - FATIGUE [None]
  - POSTOPERATIVE ADHESION [None]
